FAERS Safety Report 22197502 (Version 1)
Quarter: 2023Q2

REPORT INFORMATION
  Report Type: Spontaneous
  Country: US (occurrence: US)
  Receive Date: 20230411
  Receipt Date: 20230411
  Transmission Date: 20230721
  Serious: Yes (Death)
  Sender: FDA-Public Use
  Company Number: US-RECORDATI-2023002134

PATIENT

DRUGS (8)
  1. PASIREOTIDE [Suspect]
     Active Substance: PASIREOTIDE
     Indication: Hypoglycaemia
     Dosage: UNK
  2. PASIREOTIDE [Suspect]
     Active Substance: PASIREOTIDE
     Indication: Off label use
  3. DEXTROSE [Suspect]
     Active Substance: DEXTROSE\DEXTROSE MONOHYDRATE
     Indication: Hypoglycaemia
     Route: 042
  4. DIAZOXIDE [Suspect]
     Active Substance: DIAZOXIDE
     Indication: Hypoglycaemia
     Dosage: 100 MILLIGRAM, QID
  5. PREDNISONE [Suspect]
     Active Substance: PREDNISONE
     Indication: Hypoglycaemia
     Dosage: 10 MILLIGRAM, BID
  6. OCTREOTIDE [Suspect]
     Active Substance: OCTREOTIDE
     Indication: Hypoglycaemia
     Dosage: 100 MICROGRAM, TID
     Route: 058
  7. TEMOZOLOMIDE [Suspect]
     Active Substance: TEMOZOLOMIDE
     Indication: Pancreatic neuroendocrine tumour
  8. CAPECITABINE [Suspect]
     Active Substance: CAPECITABINE
     Indication: Pancreatic neuroendocrine tumour

REACTIONS (2)
  - Death [Fatal]
  - Off label use [Recovered/Resolved]
